FAERS Safety Report 25068211 (Version 3)
Quarter: 2025Q3

REPORT INFORMATION
  Report Type: Spontaneous
  Country: EU (occurrence: EU)
  Receive Date: 20250312
  Receipt Date: 20250810
  Transmission Date: 20251021
  Serious: Yes (Death, Life-Threatening, Hospitalization, Other)
  Sender: ALEXION PHARMACEUTICALS
  Company Number: None

PATIENT
  Age: 77 Year
  Sex: Male
  Weight: 78 kg

DRUGS (1)
  1. IMFINZI [Suspect]
     Active Substance: DURVALUMAB
     Indication: Lung adenocarcinoma stage IV
     Dosage: 1500 MILLIGRAM, Q4W
     Dates: start: 20250103, end: 20250203

REACTIONS (3)
  - Myocarditis [Fatal]
  - Myositis [Fatal]
  - Muscular weakness [Fatal]

NARRATIVE: CASE EVENT DATE: 20250215
